FAERS Safety Report 24248000 (Version 1)
Quarter: 2024Q3

REPORT INFORMATION
  Report Type: Spontaneous
  Country: US (occurrence: US)
  Receive Date: 20240826
  Receipt Date: 20240826
  Transmission Date: 20241016
  Serious: No
  Sender: BRISTOL MYERS SQUIBB
  Company Number: US-BRISTOL-MYERS SQUIBB COMPANY-2024-133562

PATIENT
  Age: 47 Year
  Sex: Female

DRUGS (2)
  1. ZEPOSIA [Suspect]
     Active Substance: OZANIMOD HYDROCHLORIDE
     Indication: Multiple sclerosis
     Dosage: 4 DAYS
     Route: 048
     Dates: start: 202408
  2. ZEPOSIA [Suspect]
     Active Substance: OZANIMOD HYDROCHLORIDE
     Dosage: 3 DAYS
     Route: 048
     Dates: start: 202408

REACTIONS (4)
  - Somnolence [Unknown]
  - Fatigue [Unknown]
  - Malaise [Unknown]
  - Oropharyngeal pain [Unknown]
